FAERS Safety Report 23755140 (Version 1)
Quarter: 2024Q2

REPORT INFORMATION
  Report Type: Other
  Country: IT (occurrence: None)
  Receive Date: 20240418
  Receipt Date: 20240418
  Transmission Date: 20240716
  Serious: Yes (Other)
  Sender: FDA-Public Use
  Company Number: IT-ROCHE-3546401

PATIENT

DRUGS (7)
  1. RITUXIMAB [Suspect]
     Active Substance: RITUXIMAB
     Indication: Diffuse large B-cell lymphoma
     Dosage: ON DAY 0 OR DAY 1
     Route: 042
  2. CYCLOPHOSPHAMIDE [Suspect]
     Active Substance: CYCLOPHOSPHAMIDE
     Indication: Diffuse large B-cell lymphoma
     Dosage: ON DAY 1
     Route: 042
  3. DOXORUBICIN [Suspect]
     Active Substance: DOXORUBICIN
     Indication: Diffuse large B-cell lymphoma
     Dosage: ON DAY 1
     Route: 042
  4. VINCRISTINE [Suspect]
     Active Substance: VINCRISTINE
     Indication: Diffuse large B-cell lymphoma
     Dosage: (MAXIMUM 2 MG) ON DAY 1
     Route: 042
  5. PREDNISONE [Suspect]
     Active Substance: PREDNISONE
     Indication: Diffuse large B-cell lymphoma
     Dosage: ON DAY 1 TO 5
     Route: 048
  6. CYTARABINE [Suspect]
     Active Substance: CYTARABINE
     Indication: Prophylaxis
     Dosage: ON DAY 0 OF CYCLES 2, 3, 4, AND 5 OF R-CHOP21
     Route: 037
  7. METHOTREXATE [Suspect]
     Active Substance: METHOTREXATE
     Indication: Diffuse large B-cell lymphoma
     Dosage: 1.5 G/M2
     Route: 042

REACTIONS (26)
  - Neutropenia [Unknown]
  - Anaemia [Unknown]
  - Thrombocytopenia [Unknown]
  - Febrile neutropenia [Unknown]
  - Fatigue [Unknown]
  - Nausea [Unknown]
  - Decreased appetite [Unknown]
  - Neuropathy peripheral [Unknown]
  - Neurotoxicity [Unknown]
  - Headache [Unknown]
  - Vomiting [Unknown]
  - Arachnoiditis [Unknown]
  - Syncope [Unknown]
  - Pyrexia [Unknown]
  - Hepatic enzyme abnormal [Unknown]
  - Diarrhoea [Unknown]
  - Constipation [Unknown]
  - Atrial fibrillation [Unknown]
  - Leukopenia [Unknown]
  - Mucosal inflammation [Unknown]
  - Pneumonia [Unknown]
  - Herpes zoster [Unknown]
  - Soft tissue infection [Unknown]
  - Urinary tract infection [Unknown]
  - Haemorrhage intracranial [Unknown]
  - Acute kidney injury [Unknown]
